FAERS Safety Report 13831981 (Version 1)
Quarter: 2017Q3

REPORT INFORMATION
  Report Type: Spontaneous
  Country: US (occurrence: US)
  Receive Date: 20170803
  Receipt Date: 20170803
  Transmission Date: 20171127
  Serious: Yes (Other)
  Sender: FDA-Public Use
  Company Number: US-ROCHE-695353

PATIENT
  Sex: Female

DRUGS (2)
  1. BONIVA [Suspect]
     Active Substance: IBANDRONATE SODIUM
     Indication: OSTEOPOROSIS
     Dosage: INDICATION: PAGET^S DISEASE
     Route: 065
     Dates: start: 200609, end: 201001
  2. FOSAMAX [Suspect]
     Active Substance: ALENDRONATE SODIUM
     Indication: OSTEOPOROSIS
     Dosage: INDICATION: PAGET^S DISEASE
     Route: 065
     Dates: start: 200306, end: 200607

REACTIONS (1)
  - Osteonecrosis of jaw [Unknown]
